FAERS Safety Report 7316037-9 (Version None)
Quarter: 2011Q1

REPORT INFORMATION
  Report Type: 
  Country: None (occurrence: None)
  Receive Date: 20110225
  Receipt Date: 20110222
  Transmission Date: 20110831
  Serious: Yes (Life-Threatening)
  Sender: FDA-Public Use
  Company Number: PHHY2011JP14882

PATIENT
  Sex: Male

DRUGS (3)
  1. AMLODIPINE [Suspect]
     Dosage: 5 MG, UNK
     Route: 048
     Dates: start: 20090418
  2. CO-DIOVAN [Suspect]
     Indication: HYPERTENSION
     Dosage: 01 DF, UNK
     Route: 048
     Dates: start: 20090501, end: 20090612
  3. ASPIRIN [Suspect]
     Dosage: UNK
     Route: 048
     Dates: start: 20090418

REACTIONS (2)
  - CEREBRAL THROMBOSIS [None]
  - HYPOTENSION [None]
